FAERS Safety Report 6912174-9 (Version None)
Quarter: 2010Q3

REPORT INFORMATION
  Report Type: 
  Country: None (occurrence: None)
  Receive Date: 20100806
  Receipt Date: 20080109
  Transmission Date: 20110219
  Serious: Yes (Other)
  Sender: FDA-Public Use
  Company Number: US-PFIZER INC-2008003427

PATIENT
  Sex: Male
  Weight: 92.53 kg

DRUGS (1)
  1. DILANTIN [Suspect]
     Indication: CONVULSION
     Dates: start: 19760101

REACTIONS (2)
  - CONVULSION [None]
  - DRUG INEFFECTIVE [None]
